FAERS Safety Report 9944090 (Version 1)
Quarter: 2014Q1

REPORT INFORMATION
  Report Type: Report from Study
  Country: US (occurrence: US)
  Receive Date: 20140303
  Receipt Date: 20140303
  Transmission Date: 20141002
  Serious: No
  Sender: FDA-Public Use
  Company Number: US-ABBVIE-13P-163-1051088-00

PATIENT
  Age: 71 Year
  Sex: Female

DRUGS (8)
  1. HUMIRA [Suspect]
     Indication: PSORIATIC ARTHROPATHY
     Route: 058
     Dates: start: 201105
  2. FLUOXETINE [Concomitant]
     Indication: DEPRESSION
  3. OXYBUTYNIN [Concomitant]
     Indication: URINARY INCONTINENCE
  4. AMLODIPINE [Concomitant]
     Indication: HYPERTENSION
  5. METHOTREXATE [Concomitant]
     Indication: PSORIATIC ARTHROPATHY
  6. FOLIC ACID [Concomitant]
     Indication: VITAMIN SUPPLEMENTATION
  7. FISH OIL [Concomitant]
     Indication: SUPPLEMENTATION THERAPY
  8. MULTIVITAMIN [Concomitant]
     Indication: SUPPLEMENTATION THERAPY

REACTIONS (2)
  - Vertigo [Recovered/Resolved]
  - Ear infection [Recovered/Resolved]
